FAERS Safety Report 9627477 (Version 2)
Quarter: 2013Q4

REPORT INFORMATION
  Report Type: Not Available
  Country: US (occurrence: US)
  Receive Date: 20131016
  Receipt Date: 20131016
  Transmission Date: 20140711
  Serious: Yes (Hospitalization)
  Sender: FDA-Public Use
  Company Number: US-LUNDBECK-DKLU1088589

PATIENT
  Age: 36 Year
  Sex: Female
  Weight: 73 kg

DRUGS (14)
  1. SABRIL [Suspect]
     Indication: COMPLEX PARTIAL SEIZURES
     Route: 048
     Dates: start: 20121227, end: 20130131
  2. FELBAMATE [Concomitant]
     Indication: EPILEPSY
     Route: 048
     Dates: start: 2006, end: 20130123
  3. CARBAMAZEPINE [Concomitant]
     Indication: EPILEPSY
     Route: 048
     Dates: start: 2006, end: 20130123
  4. MULTIPLE VITAMIN [Concomitant]
     Indication: VITAMIN SUPPLEMENTATION
     Route: 048
  5. DESYREL [Concomitant]
     Indication: ANXIETY DISORDER
     Route: 048
     Dates: start: 2003
  6. LAMICTAL XR [Concomitant]
     Indication: EPILEPSY
     Route: 048
     Dates: start: 2006
  7. ACETAMINOPHEN [Concomitant]
     Indication: HEADACHE
     Route: 048
  8. IBUPROFEN [Concomitant]
     Indication: HEADACHE
     Route: 048
  9. BUPROPION [Concomitant]
     Indication: ANXIETY DISORDER
     Route: 048
     Dates: start: 2006
  10. LEVOTHYROXINE [Concomitant]
     Indication: HYPOTHYROIDISM
     Route: 048
     Dates: start: 2006
  11. TOPIRAMATE [Concomitant]
     Indication: EPILEPSY
     Route: 048
     Dates: start: 2006
  12. FLUTICASONE-SALMETROL [Concomitant]
     Indication: ASTHMA
     Route: 050
     Dates: start: 2006
  13. ZIPRASIDONE [Concomitant]
     Indication: SCHIZOPHRENIA
     Route: 048
     Dates: start: 2006, end: 20130110
  14. EFFEXOR [Concomitant]
     Indication: PANIC DISORDER
     Route: 048
     Dates: start: 2006, end: 20130110

REACTIONS (1)
  - Convulsion [Recovered/Resolved]
